FAERS Safety Report 13817037 (Version 2)
Quarter: 2017Q4

REPORT INFORMATION
  Report Type: Spontaneous
  Country: US (occurrence: US)
  Receive Date: 20170731
  Receipt Date: 20171006
  Transmission Date: 20180320
  Serious: No
  Sender: FDA-Public Use
  Company Number: US-JNJFOC-20170714559

PATIENT
  Sex: Male
  Weight: 106.6 kg

DRUGS (2)
  1. INVEGA SUSTENNA [Suspect]
     Active Substance: PALIPERIDONE PALMITATE
     Indication: PRODUCT USED FOR UNKNOWN INDICATION
     Route: 030
  2. LITHIUM CARBONATE. [Concomitant]
     Active Substance: LITHIUM CARBONATE
     Route: 065

REACTIONS (5)
  - Off label use [Unknown]
  - Syringe issue [Unknown]
  - Inappropriate schedule of drug administration [Unknown]
  - Underdose [Unknown]
  - Needle issue [Unknown]
